FAERS Safety Report 4478745-7 (Version None)
Quarter: 2004Q3

REPORT INFORMATION
  Report Type: 
  Country: None (occurrence: None)
  Receive Date: 20040923
  Receipt Date: 20040730
  Transmission Date: 20050211
  Serious: No
  Sender: FDA-Public Use
  Company Number: USA040466201

PATIENT
  Age: 39 Year
  Sex: Female
  Weight: 45 kg

DRUGS (10)
  1. FORTEO [Suspect]
     Indication: OSTEOPOROSIS
     Dosage: 20 UG DAY
     Dates: start: 20040401
  2. SULFASALAZINE [Concomitant]
  3. SYNTHROID [Concomitant]
  4. SUDAFED 12 HOUR [Concomitant]
  5. HECTOROL [Concomitant]
  6. NEXIUM [Concomitant]
  7. VENTOLIN INHALER (SALBUTAMOL) [Concomitant]
  8. POSTURE D ^WYETH-AYERST^ [Concomitant]
  9. CENTRUM [Concomitant]
  10. TUMS (CALCIUM CARBONATE) [Concomitant]

REACTIONS (3)
  - DIZZINESS [None]
  - HEART RATE INCREASED [None]
  - NERVOUSNESS [None]
